FAERS Safety Report 8273897-5 (Version None)
Quarter: 2012Q2

REPORT INFORMATION
  Report Type: 
  Country: None (occurrence: None)
  Receive Date: 20120411
  Receipt Date: 20120331
  Transmission Date: 20120825
  Serious: Yes (Hospitalization, Other)
  Sender: FDA-Public Use
  Company Number: DE-SANOFI-AVENTIS-2012SA023019

PATIENT
  Age: 89 Year
  Sex: Female

DRUGS (10)
  1. DABIGATRAN ETEXILATE [Interacting]
     Indication: ATRIAL FIBRILLATION
     Route: 065
     Dates: start: 20120101, end: 20120328
  2. NAROPIN [Interacting]
     Indication: THORACIC VERTEBRAL FRACTURE
     Route: 065
     Dates: start: 20120213
  3. BUPIVACAINE HCL [Interacting]
     Indication: THORACIC VERTEBRAL FRACTURE
     Route: 065
     Dates: start: 20120213
  4. TORSEMIDE [Concomitant]
     Route: 065
     Dates: end: 20120328
  5. ALLOPURINOL [Concomitant]
     Route: 065
     Dates: end: 20120328
  6. TRIAMTERENE AND HYDROCHLOROTHIAZIDE [Concomitant]
     Dosage: SINGLE DOSE: 50/25 MG
     Route: 065
     Dates: end: 20120328
  7. ACETYLSALICYLIC ACID SRT [Concomitant]
     Indication: ATRIAL FIBRILLATION
     Route: 048
     Dates: end: 20120101
  8. PREDNISOLONE ACETATE [Interacting]
     Indication: THORACIC VERTEBRAL FRACTURE
     Route: 065
     Dates: start: 20120213
  9. PRILOCAINE HYDROCHLORIDE [Interacting]
     Indication: THORACIC VERTEBRAL FRACTURE
     Route: 065
     Dates: start: 20120213
  10. MULTAQ [Suspect]
     Indication: ATRIAL FIBRILLATION
     Route: 048
     Dates: start: 20120130, end: 20120218

REACTIONS (6)
  - DRUG INTERACTION [None]
  - CARDIAC FAILURE [None]
  - HEART RATE INCREASED [None]
  - ATRIAL FIBRILLATION [None]
  - BRADYCARDIA [None]
  - CARDIAC DISORDER [None]
